FAERS Safety Report 10004287 (Version 1)
Quarter: 2014Q1

REPORT INFORMATION
  Report Type: Spontaneous
  Country: US (occurrence: US)
  Receive Date: 20140312
  Receipt Date: 20140312
  Transmission Date: 20141002
  Serious: No
  Sender: FDA-Public Use
  Company Number: US-PFIZER INC-2014070627

PATIENT
  Age: 67 Year
  Sex: Female

DRUGS (1)
  1. LYRICA [Suspect]
     Indication: POOR QUALITY SLEEP
     Dosage: 1 DF, 1X/DAY (DAILY SINGLE DOSE AT BEDTIME)

REACTIONS (4)
  - Dizziness [Unknown]
  - Drug effect incomplete [Unknown]
  - Activities of daily living impaired [Unknown]
  - Drug intolerance [Unknown]
